FAERS Safety Report 7576972-3 (Version None)
Quarter: 2011Q2

REPORT INFORMATION
  Report Type: 
  Country: None (occurrence: None)
  Receive Date: 20110628
  Receipt Date: 20110104
  Transmission Date: 20111010
  Serious: Yes (Hospitalization, Other)
  Sender: FDA-Public Use
  Company Number: US-BAYER-201034728NA

PATIENT
  Age: 41 Year
  Sex: Female
  Weight: 93 kg

DRUGS (10)
  1. YASMIN [Suspect]
     Indication: ORAL CONTRACEPTION
     Dates: start: 20040101, end: 20050101
  2. PREDNISONE [Concomitant]
     Indication: SYSTEMIC LUPUS ERYTHEMATOSUS
     Dosage: 5 MG, QD
     Route: 048
     Dates: start: 20010101
  3. CELEBREX [Concomitant]
     Indication: RHEUMATOID ARTHRITIS
     Dosage: 200 MG, CONT
     Dates: end: 20050901
  4. NEXIUM [Concomitant]
     Indication: GASTROOESOPHAGEAL REFLUX DISEASE
     Dosage: 40 MG, CONT
  5. MAXALT [Concomitant]
     Indication: MIGRAINE
     Dosage: UNK UNK, PRN
  6. METHOTREXAT [METHOTREXATE] [Concomitant]
     Indication: SYSTEMIC LUPUS ERYTHEMATOSUS
     Dosage: 7.5 MG, OW
     Route: 048
  7. PREVACID [Concomitant]
     Dosage: 30 MG, CONT
     Route: 048
  8. MICARDIS [Concomitant]
     Indication: BLOOD PRESSURE INCREASED
     Dosage: 80 MG, CONT
  9. AMBIEN [Concomitant]
     Dosage: 10 MG, PRN
     Route: 048
  10. HYDROCHLOROTHIAZIDE [Concomitant]
     Indication: BLOOD PRESSURE INCREASED
     Dosage: 12.5 MG, UNK

REACTIONS (3)
  - THROMBOSIS [None]
  - INJURY [None]
  - DEEP VEIN THROMBOSIS [None]
